FAERS Safety Report 6251376-4 (Version None)
Quarter: 2009Q2

REPORT INFORMATION
  Report Type: 
  Country: None (occurrence: None)
  Receive Date: 20090630
  Receipt Date: 20090622
  Transmission Date: 20091009
  Serious: Yes (Other)
  Sender: FDA-Public Use
  Company Number: B0579992A

PATIENT
  Sex: Male
  Weight: 81 kg

DRUGS (4)
  1. SERETIDE [Suspect]
     Indication: ASTHMA
     Dosage: 1PUFF TWICE PER DAY
     Route: 055
     Dates: end: 20071108
  2. FLIXOTIDE [Suspect]
     Indication: DRUG USE FOR UNKNOWN INDICATION
     Dosage: 1PUFF TWICE PER DAY
     Route: 055
  3. SINGULAIR [Concomitant]
     Dosage: 10MG PER DAY
     Route: 048
  4. SEREVENT [Concomitant]
     Dosage: 1PUFF TWICE PER DAY
     Dates: start: 20081102

REACTIONS (2)
  - ASTHMA [None]
  - TIC [None]
